FAERS Safety Report 17663605 (Version 1)
Quarter: 2020Q2

REPORT INFORMATION
  Report Type: Spontaneous
  Country: SE (occurrence: SE)
  Receive Date: 20200414
  Receipt Date: 20200414
  Transmission Date: 20200713
  Serious: Yes (Other)
  Sender: FDA-Public Use
  Company Number: SE-BIOGEN-2020BI00861803

PATIENT
  Age: 37 Year
  Sex: Male

DRUGS (1)
  1. TECFIDERA [Suspect]
     Active Substance: DIMETHYL FUMARATE
     Indication: MULTIPLE SCLEROSIS
     Route: 065
     Dates: start: 20180129

REACTIONS (2)
  - Varicella virus test positive [Not Recovered/Not Resolved]
  - Herpes zoster oticus [Not Recovered/Not Resolved]

NARRATIVE: CASE EVENT DATE: 20200214
